FAERS Safety Report 18080527 (Version 1)
Quarter: 2020Q3

REPORT INFORMATION
  Report Type: Spontaneous
  Country: US (occurrence: US)
  Receive Date: 20200728
  Receipt Date: 20200728
  Transmission Date: 20201103
  Serious: Yes (Disabling, Other)
  Sender: FDA-Public Use
  Company Number: US-PURDUE-USA-2020-0159614

PATIENT
  Sex: Male

DRUGS (1)
  1. OXYCONTIN [Suspect]
     Active Substance: OXYCODONE HYDROCHLORIDE
     Indication: TIBIA FRACTURE
     Dosage: UNKNOWN
     Route: 048
     Dates: start: 2002

REACTIONS (4)
  - Intentional product use issue [Unknown]
  - Drug dependence [Unknown]
  - Drug abuse [Unknown]
  - Imprisonment [Unknown]
